FAERS Safety Report 6575146-2 (Version None)
Quarter: 2010Q1

REPORT INFORMATION
  Report Type: 
  Country: None (occurrence: None)
  Receive Date: 20100209
  Receipt Date: 20100202
  Transmission Date: 20100710
  Serious: No
  Sender: FDA-Public Use
  Company Number: FR-TEVA-223100ISR

PATIENT
  Sex: Female

DRUGS (3)
  1. PACLITAXEL [Suspect]
     Indication: BREAST CANCER METASTATIC
     Dates: start: 20070801
  2. PAMIDRONATE DISODIUM [Suspect]
     Route: 042
     Dates: start: 20070801, end: 20090801
  3. BEVACIZUMAB [Suspect]
     Indication: BREAST CANCER METASTATIC
     Route: 042
     Dates: start: 20070801

REACTIONS (1)
  - OSTEONECROSIS [None]
